FAERS Safety Report 21993742 (Version 4)
Quarter: 2023Q2

REPORT INFORMATION
  Report Type: Report from Study
  Country: US (occurrence: US)
  Receive Date: 20230215
  Receipt Date: 20230421
  Transmission Date: 20230721
  Serious: Yes (Hospitalization)
  Sender: FDA-Public Use
  Company Number: US-002147023-NVSC2023US032000

PATIENT
  Sex: Female

DRUGS (1)
  1. ENTRESTO [Suspect]
     Active Substance: SACUBITRIL\VALSARTAN
     Indication: Product used for unknown indication
     Dosage: 1 DOSAGE FORM, BID
     Route: 048
     Dates: start: 202206

REACTIONS (8)
  - Hepatic mass [Unknown]
  - Muscular weakness [Unknown]
  - Dyspepsia [Unknown]
  - Pain [Unknown]
  - Mineral deficiency [Recovering/Resolving]
  - Dehydration [Recovering/Resolving]
  - Dysstasia [Recovering/Resolving]
  - Diarrhoea [Unknown]
